FAERS Safety Report 16700003 (Version 1)
Quarter: 2019Q3

REPORT INFORMATION
  Report Type: Spontaneous
  Country: CN (occurrence: CN)
  Receive Date: 20190813
  Receipt Date: 20190813
  Transmission Date: 20191004
  Serious: Yes (Hospitalization)
  Sender: FDA-Public Use
  Company Number: CN-BAXTER-2019BAX015693

PATIENT
  Age: 27 Year
  Sex: Female
  Weight: 45 kg

DRUGS (6)
  1. HOLOXAN [Suspect]
     Active Substance: IFOSFAMIDE
     Indication: MALIGNANT CONNECTIVE TISSUE NEOPLASM
     Dosage: DILUTED WITH 0.9% SODIUM CHLORIDE [NS] OF 500 ML, DAYS (1-4)
     Route: 041
     Dates: start: 20190717, end: 20190720
  2. 0.9% SODIUM CHLORIDE INJECTION [Suspect]
     Active Substance: SODIUM CHLORIDE
     Indication: MEDICATION DILUTION
     Dosage: DILUENT FOR HOLOXAN OF 2.7 GRAM, DAYS (1-4),
     Route: 041
     Dates: start: 20190717, end: 20190720
  3. HOLOXAN [Suspect]
     Active Substance: IFOSFAMIDE
     Indication: SOFT TISSUE SARCOMA
  4. ETOPOSIDE. [Suspect]
     Active Substance: ETOPOSIDE
     Indication: SOFT TISSUE SARCOMA
  5. 0.9% SODIUM CHLORIDE INJECTION [Suspect]
     Active Substance: SODIUM CHLORIDE
     Dosage: DILUENT FOR ETOPOSIDE OF 100 MG, DAYS (1-4),
     Route: 041
     Dates: start: 20190717, end: 20190720
  6. ETOPOSIDE. [Suspect]
     Active Substance: ETOPOSIDE
     Indication: MALIGNANT CONNECTIVE TISSUE NEOPLASM
     Dosage: DILUTED WITH 0.9% SODIUM CHLORIDE [NS] OF 500 ML, DAYS (1-4)
     Route: 041
     Dates: start: 20190717, end: 20190720

REACTIONS (1)
  - Bone marrow failure [Recovered/Resolved]

NARRATIVE: CASE EVENT DATE: 20190721
